FAERS Safety Report 13518936 (Version 1)
Quarter: 2017Q2

REPORT INFORMATION
  Report Type: Report from Study
  Country: JP (occurrence: JP)
  Receive Date: 20170505
  Receipt Date: 20170505
  Transmission Date: 20170830
  Serious: Yes (Life-Threatening, Hospitalization, Other)
  Sender: FDA-Public Use
  Company Number: JP-BAYER-2017-085439

PATIENT
  Age: 20 Year
  Sex: Female

DRUGS (4)
  1. ACETYLSALICYLATE-ACETAMINOPHEN [Suspect]
     Active Substance: ACETAMINOPHEN\ASPIRIN
     Indication: HEADACHE
     Dosage: UNK
  2. ACETAMINOPHEN. [Suspect]
     Active Substance: ACETAMINOPHEN
  3. PHENOBARBITAL. [Concomitant]
     Active Substance: PHENOBARBITAL
     Dosage: UNK
  4. IBUPROFEN. [Concomitant]
     Active Substance: IBUPROFEN
     Indication: DYSMENORRHOEA
     Dosage: UNK

REACTIONS (3)
  - Vanishing bile duct syndrome [Recovering/Resolving]
  - Stevens-Johnson syndrome [Unknown]
  - Xanthoma [Recovered/Resolved]
